FAERS Safety Report 11455590 (Version 1)
Quarter: 2015Q3

REPORT INFORMATION
  Report Type: Spontaneous
  Country: US (occurrence: US)
  Receive Date: 20150903
  Receipt Date: 20150903
  Transmission Date: 20151125
  Serious: Yes (Hospitalization)
  Sender: FDA-Public Use
  Company Number: US-BEH-2014044189

PATIENT
  Sex: Male
  Weight: 86 kg

DRUGS (21)
  1. VESICARE [Concomitant]
     Active Substance: SOLIFENACIN SUCCINATE
  2. PROAIR HFA [Concomitant]
     Active Substance: ALBUTEROL SULFATE
  3. BUDESONIDE. [Concomitant]
     Active Substance: BUDESONIDE
  4. SYMBICORT [Concomitant]
     Active Substance: BUDESONIDE\FORMOTEROL FUMARATE DIHYDRATE
  5. AMLODIPINE [Concomitant]
     Active Substance: AMLODIPINE BESYLATE
  6. CENTRUM SILVER [Concomitant]
     Active Substance: VITAMINS
  7. HEPARIN [Concomitant]
     Active Substance: HEPARIN SODIUM
  8. EPIPEN [Concomitant]
     Active Substance: EPINEPHRINE
  9. PRAVASTATIN [Concomitant]
     Active Substance: PRAVASTATIN\PRAVASTATIN SODIUM
  10. ZEMAIRA [Suspect]
     Active Substance: .ALPHA.1-PROTEINASE INHIBITOR HUMAN
     Indication: ALPHA-1 ANTI-TRYPSIN DEFICIENCY
     Dosage: MAXIMUM RATE 0.08 ML/KG/MIN (7 ML/MIN)
     Route: 042
  11. OXYGEN. [Concomitant]
     Active Substance: OXYGEN
  12. DIPHENHYDRAMINE. [Concomitant]
     Active Substance: DIPHENHYDRAMINE
  13. SODIUM CHLORIDE. [Concomitant]
     Active Substance: SODIUM CHLORIDE
  14. CITRACAL [Concomitant]
     Active Substance: CALCIUM CITRATE
  15. NASONEX [Concomitant]
     Active Substance: MOMETASONE FUROATE
  16. LISINOPRIL. [Concomitant]
     Active Substance: LISINOPRIL
  17. ASPIRIN. [Concomitant]
     Active Substance: ASPIRIN
  18. VERAPAMIL [Concomitant]
     Active Substance: VERAPAMIL HYDROCHLORIDE
  19. SALINE NASAL SPRAY [Concomitant]
     Active Substance: SODIUM CHLORIDE
  20. SPIRIVA [Concomitant]
     Active Substance: TIOTROPIUM BROMIDE MONOHYDRATE
  21. DOXAZOSIN [Concomitant]
     Active Substance: DOXAZOSIN\DOXAZOSIN MESYLATE

REACTIONS (1)
  - Drug hypersensitivity [Unknown]
